FAERS Safety Report 5629990-6 (Version None)
Quarter: 2008Q1

REPORT INFORMATION
  Report Type: 
  Country: None (occurrence: None)
  Receive Date: 20080218
  Receipt Date: 20080207
  Transmission Date: 20080703
  Serious: Yes (Other)
  Sender: FDA-Public Use
  Company Number: PHBS2008BR01968

PATIENT
  Age: 55 Year
  Sex: Female
  Weight: 57 kg

DRUGS (2)
  1. CODATEN [Suspect]
     Indication: MUSCULOSKELETAL PAIN
     Dosage: 50 MG, Q8H
     Route: 048
     Dates: start: 20080131
  2. DECADRON [Concomitant]
     Indication: MUSCULOSKELETAL PAIN
     Dosage: 2 DF, UNK

REACTIONS (9)
  - CONSTIPATION [None]
  - DIZZINESS [None]
  - DRY MOUTH [None]
  - FEELING DRUNK [None]
  - HEART RATE INCREASED [None]
  - PRURITUS [None]
  - SLEEP DISORDER [None]
  - THIRST [None]
  - TREMOR [None]
